FAERS Safety Report 9162235 (Version 1)
Quarter: 2013Q1

REPORT INFORMATION
  Report Type: Spontaneous
  Country: US (occurrence: None)
  Receive Date: 20130222
  Receipt Date: 20130222
  Transmission Date: 20140127
  Serious: Yes (Other)
  Sender: FDA-Public Use
  Company Number: ACO_22864_2010

PATIENT
  Age: 41 Year
  Sex: Female

DRUGS (9)
  1. AMPYRA [Suspect]
     Indication: PRODUCT USED FOR UNKNOWN INDICATION
     Dates: start: 20100823, end: 20100823
  2. VITAMIN C [Concomitant]
  3. GARLIC (ALLIUM SATIVUM) [Concomitant]
  4. ESTROVEN (BORON, CALCIUM, CIMICIFUGA RACEMOSA EXTRACT, FOLIC ACID, GLYCINE MAX EXTRACT, MAGNOLIA OFFICINALIS, NICOTINIC ACID, PYRIDOXINE HYDROCHLORIDE, RIBOFLAVIN, SELENIUM, THIAMINE, TOCOPHEROL, VITAMIN B12 NOS) [Concomitant]
  5. LASIX (FUROSEMIDE) [Concomitant]
  6. LAMOTRIGINE (LAMOTRIGINE) [Concomitant]
  7. BACLOFEN (BACLOFEN) (BACLOFEN) [Concomitant]
  8. GABAPENTIN (GABAPENTIN) [Concomitant]
  9. NUVIGIL [Concomitant]

REACTIONS (7)
  - Convulsion [None]
  - Dyskinesia [None]
  - Nausea [None]
  - Feeling abnormal [None]
  - Somnolence [None]
  - Dizziness [None]
  - Contraindication to medical treatment [None]
